FAERS Safety Report 25862651 (Version 2)
Quarter: 2025Q4

REPORT INFORMATION
  Report Type: Spontaneous
  Country: US (occurrence: US)
  Receive Date: 20250930
  Receipt Date: 20251209
  Transmission Date: 20260119
  Serious: Yes (Other)
  Sender: ROCHE
  Company Number: US-002147023-NVSC2025US148413

PATIENT
  Sex: Female

DRUGS (2)
  1. LUCENTIS [Suspect]
     Active Substance: RANIBIZUMAB
     Indication: Retinopathy of prematurity
     Dosage: 0.25 MG/0.025 ML (FIRST INJECTION IN BOTH EYES AT 36 WEEKS AT POST-MENSTRUAL AGE)
  2. LUCENTIS [Suspect]
     Active Substance: RANIBIZUMAB
     Dosage: 0.25 MG/0.025 ML (SECOND INJECTION IN BOTH EYES AT 42 WEEKS RIGHT EYE, 41 WEEKS LEFT EYE POST-MENSTRUAL AGE)

REACTIONS (2)
  - Retinopathy of prematurity [Unknown]
  - Disease recurrence [Unknown]
